FAERS Safety Report 12384808 (Version 2)
Quarter: 2016Q2

REPORT INFORMATION
  Report Type: Spontaneous
  Country: BR (occurrence: BR)
  Receive Date: 20160519
  Receipt Date: 20160602
  Transmission Date: 20160815
  Serious: Yes (Other)
  Sender: FDA-Public Use
  Company Number: BR-SA-2016SA095026

PATIENT
  Age: 32 Year
  Sex: Female
  Weight: 55 kg

DRUGS (1)
  1. CLOMID [Suspect]
     Active Substance: CLOMIPHENE CITRATE
     Indication: INFERTILITY
     Route: 048
     Dates: start: 2014, end: 2015

REACTIONS (1)
  - Abortion spontaneous [Unknown]

NARRATIVE: CASE EVENT DATE: 201502
